FAERS Safety Report 10904859 (Version 1)
Quarter: 2015Q1

REPORT INFORMATION
  Report Type: Spontaneous
  Country: NL (occurrence: NL)
  Receive Date: 20150311
  Receipt Date: 20150311
  Transmission Date: 20150721
  Serious: Yes (Hospitalization)
  Sender: FDA-Public Use
  Company Number: NL-IMPAX LABORATORIES, INC-2015-IPXL-00253

PATIENT
  Age: 57 Year
  Sex: Male

DRUGS (1)
  1. BACLOFEN. [Suspect]
     Active Substance: BACLOFEN
     Dosage: 34 TABLETS OF 10 MG IN TOTAL
     Route: 065

REACTIONS (11)
  - Body temperature decreased [Unknown]
  - Self-medication [Unknown]
  - Haemoglobin decreased [Unknown]
  - Blood pressure decreased [Unknown]
  - White blood cell count increased [Unknown]
  - Intentional overdose [Unknown]
  - Respiratory rate decreased [Unknown]
  - Heart rate decreased [Unknown]
  - Blood sodium decreased [Unknown]
  - Blood glucose increased [Unknown]
  - Loss of consciousness [Recovered/Resolved]
